FAERS Safety Report 9882563 (Version 1)
Quarter: 2014Q1

REPORT INFORMATION
  Report Type: Spontaneous
  Country: JP (occurrence: JP)
  Receive Date: 20140207
  Receipt Date: 20140207
  Transmission Date: 20141002
  Serious: Yes (Death)
  Sender: FDA-Public Use
  Company Number: JP-EISAI INC-E2090-03108-SPO-JP

PATIENT
  Age: 63 Year
  Sex: Male

DRUGS (1)
  1. EXCEGRAN [Suspect]
     Indication: CONVULSION PROPHYLAXIS
     Dosage: UNKNOWN
     Route: 048

REACTIONS (1)
  - Stevens-Johnson syndrome [Fatal]
